FAERS Safety Report 6676635-2 (Version None)
Quarter: 2010Q2

REPORT INFORMATION
  Report Type: 
  Country: None (occurrence: None)
  Receive Date: 20100409
  Receipt Date: 20100409
  Transmission Date: 20101027
  Serious: No
  Sender: FDA-Public Use
  Company Number: None

PATIENT
  Sex: Female
  Weight: 64.8644 kg

DRUGS (1)
  1. LEVAQUIN [Suspect]
     Indication: SINUSITIS
     Dosage: 750 MG 1 PER DAY
     Dates: start: 20091116, end: 20091120

REACTIONS (3)
  - ARTHRALGIA [None]
  - JOINT EFFUSION [None]
  - MENISCUS LESION [None]
